FAERS Safety Report 8031783-X (Version None)
Quarter: 2012Q1

REPORT INFORMATION
  Report Type: 
  Country: None (occurrence: None)
  Receive Date: 20120109
  Receipt Date: 20120105
  Transmission Date: 20120608
  Serious: Yes (Death)
  Sender: FDA-Public Use
  Company Number: JP-ASTRAZENECA-2012SE01122

PATIENT
  Age: 74 Year
  Sex: Male

DRUGS (1)
  1. DIPRIVAN [Suspect]
     Route: 042
     Dates: start: 20101101, end: 20101201

REACTIONS (2)
  - RHABDOMYOLYSIS [None]
  - RENAL FAILURE ACUTE [None]
